FAERS Safety Report 9419809 (Version 1)
Quarter: 2013Q3

REPORT INFORMATION
  Report Type: Spontaneous
  Country: US (occurrence: None)
  Receive Date: 20130723
  Receipt Date: 20130723
  Transmission Date: 20140515
  Serious: Yes (Other)
  Sender: FDA-Public Use
  Company Number: ADR-2013-01201

PATIENT
  Age: 49 Year
  Sex: Female

DRUGS (1)
  1. LIORESAL [Suspect]
     Indication: MUSCLE SPASTICITY
     Dosage: 24 MCG/DAU; SEE B5

REACTIONS (4)
  - Scar [None]
  - Catheter site related reaction [None]
  - Muscle spasticity [None]
  - Device occlusion [None]
